FAERS Safety Report 24901444 (Version 1)
Quarter: 2025Q1

REPORT INFORMATION
  Report Type: Report from Study
  Country: US (occurrence: US)
  Receive Date: 20250129
  Receipt Date: 20250129
  Transmission Date: 20250409
  Serious: Yes (Other)
  Sender: ABBVIE
  Company Number: US-ABBVIE-6085979

PATIENT
  Sex: Female
  Weight: 87 kg

DRUGS (2)
  1. RINVOQ [Suspect]
     Active Substance: UPADACITINIB
     Indication: Rheumatoid arthritis
     Route: 048
     Dates: start: 20221208
  2. RINVOQ [Suspect]
     Active Substance: UPADACITINIB
     Indication: Rheumatoid arthritis
     Route: 048
     Dates: start: 20241217

REACTIONS (11)
  - Thrombosis [Unknown]
  - Haematoma [Unknown]
  - Pain in extremity [Unknown]
  - Back pain [Unknown]
  - Cauda equina syndrome [Unknown]
  - Cerebrospinal fluid retention [Unknown]
  - Lumbar spinal stenosis [Unknown]
  - Spinal fusion acquired [Unknown]
  - Spinal laminectomy [Unknown]
  - Urinary retention [Unknown]
  - Arthritis [Unknown]

NARRATIVE: CASE EVENT DATE: 20241211
